FAERS Safety Report 8989899 (Version 1)
Quarter: 2012Q4

REPORT INFORMATION
  Report Type: 
  Country: FR (occurrence: FR)
  Receive Date: 20121228
  Receipt Date: 20121228
  Transmission Date: 20130627
  Serious: Yes (Death, Other)
  Sender: FDA-Public Use
  Company Number: FR-PFIZER INC-2012330590

PATIENT
  Age: 89 Year
  Sex: Male

DRUGS (7)
  1. LYRICA [Suspect]
     Indication: BACK PAIN
     Dosage: UNK
     Route: 048
     Dates: start: 20120824, end: 20120921
  2. GENTAMICIN [Suspect]
     Indication: SPONDYLODISCITIS
     Dosage: UNK
     Route: 042
     Dates: start: 20120919, end: 20120919
  3. ORBENINE [Suspect]
     Indication: SPONDYLODISCITIS
     Dosage: UNK
     Route: 042
     Dates: start: 20120919, end: 20120924
  4. LOVENOX [Suspect]
     Indication: ANTICOAGULANT THERAPY
     Dosage: UNK
     Route: 058
     Dates: start: 20120825, end: 20120922
  5. OXYNORM [Suspect]
     Indication: BACK PAIN
     Dosage: UNK
     Route: 048
     Dates: start: 20120908, end: 20120920
  6. OXYCONTIN [Suspect]
     Indication: BACK PAIN
     Dosage: UNK
     Route: 048
     Dates: start: 20120824, end: 20120921
  7. TRIMEBUTINE [Suspect]
     Indication: INTESTINAL SPASM
     Dosage: UNK
     Route: 048
     Dates: start: 20120912, end: 20120924

REACTIONS (5)
  - Renal failure acute [Fatal]
  - Septic shock [Fatal]
  - Multi-organ failure [Fatal]
  - Intervertebral discitis [Unknown]
  - Drug level increased [Unknown]
